FAERS Safety Report 6109492-3 (Version None)
Quarter: 2009Q1

REPORT INFORMATION
  Report Type: 
  Country: None (occurrence: None)
  Receive Date: 20090310
  Receipt Date: 20090303
  Transmission Date: 20090719
  Serious: Yes (Other)
  Sender: FDA-Public Use
  Company Number: US-BAYER-200910224BCC

PATIENT
  Age: 41 Year
  Sex: Male
  Weight: 136 kg

DRUGS (5)
  1. ALKA SELTZER PLUS COLD SPARKLING ORIGINAL EFFERVESCENT TABLETS [Suspect]
     Indication: NASOPHARYNGITIS
     Dosage: UNIT DOSE: 1 DF
  2. ALKA SELTZER PLUS COLD SPARKLING ORIGINAL EFFERVESCENT TABLETS [Suspect]
     Dates: start: 20050101
  3. ALKA SELTZER PLUS FLU EFFERVESCENT TABLETS [Suspect]
     Indication: NASOPHARYNGITIS
     Dosage: UNIT DOSE: 1 DF
     Dates: start: 20050101
  4. ALKA SELTZER PLUS COLD CHERRY BURST EFFERVESCENT TABLETS [Suspect]
     Indication: NASOPHARYNGITIS
     Route: 048
  5. ADVAIR HFA [Concomitant]

REACTIONS (1)
  - DEAFNESS [None]
